FAERS Safety Report 13711327 (Version 3)
Quarter: 2017Q3

REPORT INFORMATION
  Report Type: Spontaneous
  Country: DE (occurrence: DE)
  Receive Date: 20170703
  Receipt Date: 20170825
  Transmission Date: 20171127
  Serious: Yes (Death, Hospitalization)
  Sender: FDA-Public Use
  Company Number: DE-JNJFOC-20170628905

PATIENT
  Age: 76 Year
  Sex: Female

DRUGS (3)
  1. XARELTO [Suspect]
     Active Substance: RIVAROXABAN
     Indication: ANTICOAGULANT THERAPY
     Route: 048
     Dates: start: 201702
  2. CLOPIDOGREL [Concomitant]
     Active Substance: CLOPIDOGREL BISULFATE
     Indication: STENT PLACEMENT
     Route: 065
     Dates: start: 201702
  3. FRAXIPARINE [Concomitant]
     Active Substance: NADROPARIN CALCIUM
     Route: 058
     Dates: start: 2016

REACTIONS (7)
  - Upper gastrointestinal haemorrhage [Unknown]
  - Wound haemorrhage [Unknown]
  - General physical health deterioration [Unknown]
  - Epistaxis [Unknown]
  - Haemorrhage [Unknown]
  - Eye haemorrhage [Unknown]
  - Anaemia [Unknown]

NARRATIVE: CASE EVENT DATE: 2017
